FAERS Safety Report 8546184-5 (Version None)
Quarter: 2012Q3

REPORT INFORMATION
  Report Type: 
  Country: None (occurrence: None)
  Receive Date: 20120727
  Receipt Date: 20120723
  Transmission Date: 20120928
  Serious: Yes (Other)
  Sender: FDA-Public Use
  Company Number: PHHY2012FR063228

PATIENT
  Age: 79 Year
  Sex: Female

DRUGS (12)
  1. RIFAMPICIN [Concomitant]
     Indication: PULMONARY TUBERCULOSIS
  2. ETHAMBUTOL HYDROCHLORIDE [Concomitant]
     Indication: PULMONARY TUBERCULOSIS
  3. ATENOLOL [Concomitant]
  4. HYDROCHLOROTHIAZIDE [Concomitant]
  5. VITAMIN D [Concomitant]
  6. CALCIUM [Concomitant]
  7. PROGESTERONE [Concomitant]
  8. CANDESARTAN [Concomitant]
  9. SIMVASTATIN [Concomitant]
  10. ISONIAZID [Suspect]
     Indication: PULMONARY TUBERCULOSIS
  11. ESTROGEN NOS [Concomitant]
  12. MAGNESIUM SULFATE [Concomitant]

REACTIONS (4)
  - WEIGHT DECREASED [None]
  - PANCREATITIS ACUTE [None]
  - VOMITING [None]
  - BLOOD POTASSIUM DECREASED [None]
